FAERS Safety Report 13673005 (Version 10)
Quarter: 2018Q4

REPORT INFORMATION
  Report Type: Report from Study
  Country: DE (occurrence: DE)
  Receive Date: 20170621
  Receipt Date: 20181228
  Transmission Date: 20190204
  Serious: Yes (Life-Threatening, Hospitalization, Other)
  Sender: FDA-Public Use
  Company Number: PHHY2017DE037337

PATIENT
  Age: 77 Year
  Sex: Female
  Weight: 82 kg

DRUGS (18)
  1. BISOPROLOL [Concomitant]
     Active Substance: BISOPROLOL
     Indication: PULMONARY OEDEMA
  2. MCP [Concomitant]
     Active Substance: METOCLOPRAMIDE HYDROCHLORIDE
     Indication: DECREASED APPETITE
     Dosage: 25.4 MG, QD (1-0-0)
     Route: 065
     Dates: start: 20170104
  3. EXJADE [Suspect]
     Active Substance: DEFERASIROX
     Dosage: 1440 MG, (19.73 MG/KG BODY WEIGHT PER DAY = 4TABLETS)
     Route: 048
     Dates: start: 20170419, end: 20170613
  4. EXJADE [Suspect]
     Active Substance: DEFERASIROX
     Dosage: 1440 MG, (19.7 MG/KG BODY WEIGHT PER DAY = 4TABLETS)
     Route: 048
     Dates: start: 20170616, end: 20170707
  5. EXJADE [Suspect]
     Active Substance: DEFERASIROX
     Dosage: 17.5 MG/KG, UNK
     Route: 048
  6. EXJADE [Suspect]
     Active Substance: DEFERASIROX
     Dosage: 1440 MG, UNK (19.7 MG/KG BODY WEIGHT PER DAY = 4TABLETS)
     Route: 048
     Dates: start: 20170719, end: 20171104
  7. DELIX [Concomitant]
     Indication: HYPERTENSION
     Dosage: 2.5 MG, BID (2.5-0-2.5)
     Route: 048
  8. ALLOPURINOL. [Concomitant]
     Active Substance: ALLOPURINOL
     Indication: PROPHYLAXIS
     Dosage: 300 MG, QD (1-0-0)
     Route: 048
  9. DELIX [Concomitant]
     Indication: PULMONARY OEDEMA
     Dosage: UNK
     Route: 048
  10. BISOPROLOL [Concomitant]
     Active Substance: BISOPROLOL
     Indication: HYPERTENSION
     Dosage: 20 MG, BID(1-0-1)
     Route: 065
  11. ASPIRIN. [Suspect]
     Active Substance: ASPIRIN
     Indication: MITRAL VALVE INCOMPETENCE
     Dosage: 100 MG, QD (1-0-0)
     Route: 048
     Dates: end: 20170306
  12. LERCANIDIPINE [Concomitant]
     Active Substance: LERCANIDIPINE
     Indication: PULMONARY OEDEMA
  13. EXJADE [Suspect]
     Active Substance: DEFERASIROX
     Dosage: 1440 MG, (17.5  MG/KG BODY WEIGHT PER DAY = 4TABLETS)
     Route: 048
     Dates: start: 20170315, end: 20170404
  14. LERCANIDIPINE [Concomitant]
     Active Substance: LERCANIDIPINE
     Indication: HYPERTENSION
     Dosage: 20 MG, QD (0-1-0)
     Route: 048
  15. ASPIRIN. [Suspect]
     Active Substance: ASPIRIN
     Dosage: 100 MG, QD (1-0-0)
     Route: 048
  16. TORASEMIDE [Concomitant]
     Active Substance: TORSEMIDE
     Indication: PRODUCT USED FOR UNKNOWN INDICATION
     Dosage: 10 MG, QD (1-0-0)
     Route: 065
     Dates: start: 20161013
  17. EXJADE [Suspect]
     Active Substance: DEFERASIROX
     Indication: NORMOCHROMIC NORMOCYTIC ANAEMIA
     Dosage: 1440 MG, (17.5MG/KG BODY WEIGHT PER DAY = 4TABLETS)
     Route: 048
     Dates: start: 20161201, end: 20170305
  18. PANTOZOL [Concomitant]
     Active Substance: PANTOPRAZOLE SODIUM
     Indication: PROPHYLAXIS
     Dosage: 40 MG, BID(1-0-1)
     Route: 048
     Dates: end: 20170622

REACTIONS (9)
  - Duodenal ulcer haemorrhage [Recovered/Resolved]
  - Diverticulitis [Recovered/Resolved]
  - Haematemesis [Unknown]
  - Helicobacter infection [Unknown]
  - Diarrhoea [Recovered/Resolved]
  - Diarrhoea [Recovered/Resolved]
  - Diarrhoea [Recovered/Resolved]
  - Colitis [Unknown]
  - Colitis ischaemic [Recovered/Resolved]

NARRATIVE: CASE EVENT DATE: 20170306
